FAERS Safety Report 25538453 (Version 6)
Quarter: 2025Q4

REPORT INFORMATION
  Report Type: Spontaneous
  Country: EU (occurrence: EU)
  Receive Date: 20250710
  Receipt Date: 20251107
  Transmission Date: 20260118
  Serious: Yes (Hospitalization, Disabling, Other)
  Sender: CIPLA
  Company Number: EU-EMA-DD-20250626-7482691-095729

PATIENT

DRUGS (15)
  1. ESOMEPRAZOLE [Suspect]
     Active Substance: ESOMEPRAZOLE
     Indication: Gastrooesophageal reflux disease
     Dosage: 40 MILLIGRAM, QD (ONCE A DAY), CAPSULE, ON AN EMPTY STOMACH, FORMULATION: CAPSULE
     Route: 065
  2. FOLIC ACID [Suspect]
     Active Substance: FOLIC ACID
     Indication: Product used for unknown indication
     Dosage: 5 MILLIGRAM, QD (ONE A DAY)
     Route: 065
  3. LACTULOSE [Suspect]
     Active Substance: LACTULOSE
     Indication: Product used for unknown indication
     Dosage: 1 DOSAGE FORM, QD (ONCE A DAY) (AT SNACK TIME, SACHET)
     Route: 065
  4. LEVOTHYROXINE [Suspect]
     Active Substance: LEVOTHYROXINE
     Indication: Hypothyroidism
     Dosage: 0.1 MILLIGRAM, QD (ONCE A DAY) (ON AN EMPTY STOMACH)
     Route: 065
  5. METAMIZOLE [Suspect]
     Active Substance: METAMIZOLE
     Indication: Pain
     Dosage: 1150 MILLIGRAM, QD (575 MILLIGRAMS TWICE A DAY)
     Route: 065
  6. MONTELUKAST [Suspect]
     Active Substance: MONTELUKAST
     Indication: Product used for unknown indication
     Dosage: 10 MILLIGRAM, QD (ONCE A DAY)
     Route: 065
  7. ACETAMINOPHEN\TRAMADOL [Suspect]
     Active Substance: ACETAMINOPHEN\TRAMADOL
     Indication: Product used for unknown indication
     Dosage: 3 DOSAGE FORM, QD (75 + 650 MILLIGRAMS THRICE A DAY)
     Route: 065
  8. RAMIPRIL [Suspect]
     Active Substance: RAMIPRIL
     Indication: Product used for unknown indication
     Dosage: 10 MILLIGRAM, QD (ONCE A DAY)
     Route: 065
  9. SIMVASTATIN [Suspect]
     Active Substance: SIMVASTATIN
     Indication: Product used for unknown indication
     Dosage: 20 MILLIGRAM, QD (ONCE A DAY) AT DINNER
     Route: 065
  10. TOPIRAMATE [Suspect]
     Active Substance: TOPIRAMATE
     Indication: Obesity
     Dosage: 175 MILLIGRAM, QD (TOPIRAMATE REDUCTION WITH A VERY SLOW AND GRADUAL REDUCTION SCHEDULE 75+0+100 RED
     Route: 048
  11. TOPIRAMATE [Suspect]
     Active Substance: TOPIRAMATE
     Dosage: 250 MILLIGRAM, QD (150MG+0+100MG, AND A PSYCHIATRIST AT THE NURSING CENTER HAD STARTED TO REDUCE THE
     Route: 048
  12. TOPIRAMATE [Suspect]
     Active Substance: TOPIRAMATE
     Dosage: 200 MILLIGRAM, QD (50 MG 2+0+2 (...) TOPIRAMATE REDUCTION WITH A VERY SLOW AND GRADUAL REDUCTION SCH
     Route: 048
  13. TRAZODONE [Suspect]
     Active Substance: TRAZODONE HYDROCHLORIDE
     Indication: Product used for unknown indication
     Dosage: 100 MILLIGRAM, QD (2/3 TABLET) (ONCE A DAY)
     Route: 048
  14. TRAZODONE [Suspect]
     Active Substance: TRAZODONE HYDROCHLORIDE
     Dosage: 150 MILLIGRAM, QD AT DINNER
     Route: 048
  15. VENLAFAXINE [Suspect]
     Active Substance: VENLAFAXINE HYDROCHLORIDE
     Indication: Depression
     Dosage: 75 MILLIGRAM, QD (AT BREAKFAST)
     Route: 065

REACTIONS (20)
  - Fall [Recovered/Resolved]
  - Gait inability [Recovered/Resolved]
  - Renal failure [Recovered/Resolved]
  - Mutism [Recovered/Resolved]
  - Hypotension [Recovered/Resolved]
  - Apathy [Recovered/Resolved]
  - Pain [Recovered/Resolved]
  - Nausea [Recovered/Resolved]
  - Vomiting [Recovered/Resolved]
  - Diarrhoea [Recovered/Resolved]
  - Abnormal loss of weight [Recovered/Resolved]
  - Spinal fracture [Recovered/Resolved]
  - Decreased appetite [Recovered/Resolved]
  - Cachexia [Recovered/Resolved]
  - Acute kidney injury [Recovered/Resolved]
  - Product use issue [Unknown]
  - Off label use [Unknown]
  - Hypersomnia [Recovered/Resolved]
  - Sarcopenia [Recovered/Resolved]
  - Mobility decreased [Recovering/Resolving]
